FAERS Safety Report 4416270-X (Version None)
Quarter: 2004Q3

REPORT INFORMATION
  Report Type: 
  Country: None (occurrence: None)
  Receive Date: 20040803
  Receipt Date: 20040722
  Transmission Date: 20050211
  Serious: Yes (Death)
  Sender: FDA-Public Use
  Company Number: US-JNJFOC-20040707263

PATIENT
  Age: 4 Year
  Sex: Female
  Weight: 15.4223 kg

DRUGS (4)
  1. TYLENOL [Suspect]
     Indication: INSOMNIA
     Dates: start: 20030627, end: 20030627
  2. DEMEROL [Suspect]
     Indication: INSOMNIA
     Dates: start: 20030627, end: 20030627
  3. NYQUIL (MEDINITE) [Suspect]
     Indication: INSOMNIA
     Dates: start: 20030627, end: 20030627
  4. BENADRYL [Suspect]
     Indication: INSOMNIA
     Dates: start: 20030627, end: 20030627

REACTIONS (4)
  - INTENTIONAL MISUSE [None]
  - MEDICATION ERROR [None]
  - MULTIPLE DRUG OVERDOSE [None]
  - VICTIM OF HOMICIDE [None]
